FAERS Safety Report 7927276-8 (Version None)
Quarter: 2011Q4

REPORT INFORMATION
  Report Type: 
  Country: None (occurrence: None)
  Receive Date: 20111118
  Receipt Date: 20111114
  Transmission Date: 20120403
  Serious: Yes (Other)
  Sender: FDA-Public Use
  Company Number: US-SANOFI-AVENTIS-2011SA066776

PATIENT
  Sex: Female
  Weight: 93 kg

DRUGS (15)
  1. NEXIUM [Concomitant]
  2. DIGOXIN [Concomitant]
  3. CARVEDILOL [Concomitant]
  4. CITRACAL + D [Concomitant]
  5. ASPIRIN [Concomitant]
  6. APIDRA [Suspect]
     Indication: TYPE 2 DIABETES MELLITUS
     Dosage: THREE TIMES DAILY PER SLIDING SCALE
     Route: 058
     Dates: start: 20070101
  7. BENICAR [Concomitant]
  8. POTASSIUM CHLORIDE [Concomitant]
  9. SYNTHROID [Concomitant]
  10. CRESTOR [Concomitant]
  11. LANTUS [Suspect]
     Indication: TYPE 2 DIABETES MELLITUS
     Dosage: DOSE:30 UNIT(S)
     Route: 058
     Dates: start: 20070101
  12. PLAVIX [Concomitant]
  13. FUROSEMIDE [Concomitant]
  14. OMEGA-6 FATTY ACIDS [Concomitant]
  15. NITROGLYCERIN [Concomitant]

REACTIONS (3)
  - DRUG INEFFECTIVE [None]
  - CATARACT OPERATION [None]
  - BLOOD GLUCOSE INCREASED [None]
